FAERS Safety Report 7230010-0 (Version None)
Quarter: 2011Q1

REPORT INFORMATION
  Report Type: 
  Country: None (occurrence: None)
  Receive Date: 20110117
  Receipt Date: 20110113
  Transmission Date: 20110831
  Serious: Yes (Hospitalization)
  Sender: FDA-Public Use
  Company Number: KR-BRISTOL-MYERS SQUIBB COMPANY-15432073

PATIENT
  Age: 42 Year
  Sex: Male
  Weight: 69 kg

DRUGS (2)
  1. XELODA [Suspect]
     Indication: GASTROOESOPHAGEAL CANCER
     Dosage: RECENT DOSE ON 22NOV2010,ON DAY 1-15 15JUL-30NOV10(138D)-INTERRUPTED FORM: TAB
     Route: 048
     Dates: start: 20100715
  2. CISPLATIN [Suspect]
     Indication: GASTROOESOPHAGEAL CANCER
     Dosage: RECENT DOSE ON 08NOV2010 15JUL-30NOV10(138D)-INTERRUPTED
     Route: 042
     Dates: start: 20100715

REACTIONS (1)
  - PULMONARY EMBOLISM [None]
